FAERS Safety Report 7019564-7 (Version None)
Quarter: 2010Q3

REPORT INFORMATION
  Report Type: 
  Country: None (occurrence: None)
  Receive Date: 20100928
  Receipt Date: 20100928
  Transmission Date: 20110219
  Serious: Yes (Life-Threatening)
  Sender: FDA-Public Use
  Company Number: None

PATIENT
  Sex: Female
  Weight: 87.9978 kg

DRUGS (3)
  1. OXYCONTIN [Suspect]
     Indication: INTERVERTEBRAL DISC DEGENERATION
     Dosage: 1 TABLET 2X DAILY PO
     Route: 048
     Dates: start: 20100910, end: 20100911
  2. OXYCONTIN [Suspect]
     Indication: SPINAL COLUMN STENOSIS
     Dosage: 1 TABLET 2X DAILY PO
     Route: 048
     Dates: start: 20100910, end: 20100911
  3. OXYCONTIN [Suspect]
     Indication: SYSTEMIC LUPUS ERYTHEMATOSUS
     Dosage: 1 TABLET 2X DAILY PO
     Route: 048
     Dates: start: 20100910, end: 20100911

REACTIONS (3)
  - HAEMATEMESIS [None]
  - NAUSEA [None]
  - PRODUCT SUBSTITUTION ISSUE [None]
